FAERS Safety Report 6804667-X (Version None)
Quarter: 2010Q2

REPORT INFORMATION
  Report Type: 
  Country: None (occurrence: None)
  Receive Date: 20100628
  Receipt Date: 20070802
  Transmission Date: 20101027
  Serious: No
  Sender: FDA-Public Use
  Company Number: US-PFIZER INC-2007028611

PATIENT
  Sex: Female

DRUGS (1)
  1. CADUET [Suspect]
     Dosage: 10/20MG

REACTIONS (2)
  - CONSTIPATION [None]
  - OEDEMA PERIPHERAL [None]
